FAERS Safety Report 6894351-9 (Version None)
Quarter: 2010Q3

REPORT INFORMATION
  Report Type: 
  Country: None (occurrence: None)
  Receive Date: 20100727
  Receipt Date: 20100722
  Transmission Date: 20110219
  Serious: Yes (Other)
  Sender: FDA-Public Use
  Company Number: 20109056

PATIENT
  Sex: Female

DRUGS (1)
  1. LIORESAL [Suspect]
     Indication: MUSCLE SPASTICITY
     Dosage: 188.1 MCG, DAILY, INTRATHECAL
     Route: 037

REACTIONS (5)
  - AREFLEXIA [None]
  - DEVICE ALARM ISSUE [None]
  - DEVICE DISLOCATION [None]
  - HYPOAESTHESIA [None]
  - TREATMENT NONCOMPLIANCE [None]
